FAERS Safety Report 22369026 (Version 1)
Quarter: 2023Q2

REPORT INFORMATION
  Report Type: Spontaneous
  Country: US (occurrence: US)
  Receive Date: 20230525
  Receipt Date: 20230525
  Transmission Date: 20230722
  Serious: Yes (Hospitalization, Other)
  Sender: FDA-Public Use
  Company Number: US-Covis Pharma GmbH-2023COV01182

PATIENT
  Age: 61 Year
  Sex: Female

DRUGS (1)
  1. FERAHEME [Suspect]
     Active Substance: FERUMOXYTOL NON-STOICHIOMETRIC MAGNETITE
     Indication: Anaemia
     Dosage: 510 MG, INTRAVENOUS, ONCE; NDC #: 59338077501

REACTIONS (2)
  - Haemorrhagic stroke [Unknown]
  - Dysphagia [Unknown]

NARRATIVE: CASE EVENT DATE: 20230501
